FAERS Safety Report 6398092-6 (Version None)
Quarter: 2009Q4

REPORT INFORMATION
  Report Type: 
  Country: None (occurrence: None)
  Receive Date: 20091013
  Receipt Date: 20091002
  Transmission Date: 20100525
  Serious: Yes (Life-Threatening)
  Sender: FDA-Public Use
  Company Number: GB-JNJFOC-20091000984

PATIENT
  Age: 76 Year
  Sex: Female

DRUGS (11)
  1. REMICADE [Suspect]
     Indication: RHEUMATOID ARTHRITIS
     Route: 042
     Dates: start: 20070912, end: 20090910
  2. ALENDRONATE SODIUM [Concomitant]
  3. AMITRIPTYLINE [Concomitant]
  4. ASPIRIN [Concomitant]
  5. CO-DYDRAMOL [Concomitant]
     Route: 048
  6. FOLIC ACID [Concomitant]
  7. METHOTREXATE [Concomitant]
  8. NAPROXEN [Concomitant]
  9. SULFASALAZINE [Concomitant]
  10. TEMAZEPAM [Concomitant]
  11. VITAMIN B-12 [Concomitant]

REACTIONS (1)
  - B-CELL LYMPHOMA STAGE III [None]
